FAERS Safety Report 4931675-6 (Version None)
Quarter: 2006Q1

REPORT INFORMATION
  Report Type: 
  Country: None (occurrence: None)
  Receive Date: 20060303
  Receipt Date: 20060111
  Transmission Date: 20060701
  Serious: No
  Sender: FDA-Public Use
  Company Number: US-BRISTOL-MYERS SQUIBB COMPANY-13243498

PATIENT
  Age: 35 Year
  Sex: Male
  Weight: 85 kg

DRUGS (16)
  1. ERBITUX [Suspect]
     Indication: COLON CANCER
     Route: 042
     Dates: start: 20051229, end: 20051229
  2. CAMPTOSAR [Concomitant]
     Route: 042
     Dates: start: 20051229, end: 20051229
  3. BENADRYL [Concomitant]
     Indication: PREMEDICATION
     Route: 042
     Dates: start: 20051229, end: 20051229
  4. DECADRON SRC [Concomitant]
     Indication: PREMEDICATION
     Route: 042
     Dates: start: 20051229, end: 20051229
  5. ZOFRAN [Concomitant]
     Indication: PREMEDICATION
     Route: 042
     Dates: start: 20051229, end: 20051229
  6. AMBIEN [Concomitant]
  7. ATENOLOL [Concomitant]
  8. DESYRL [Concomitant]
  9. LEVSIN [Concomitant]
  10. LORCET-HD [Concomitant]
  11. LOVENOX [Concomitant]
  12. NEXIUM [Concomitant]
  13. OXYCONTIN [Concomitant]
  14. ZOLOFT [Concomitant]
  15. COUMADIN [Concomitant]
  16. FLEXERIL [Concomitant]

REACTIONS (2)
  - PAIN [None]
  - RASH [None]
